FAERS Safety Report 5787303-3 (Version None)
Quarter: 2008Q2

REPORT INFORMATION
  Report Type: 
  Country: None (occurrence: None)
  Receive Date: 20080625
  Receipt Date: 20070905
  Transmission Date: 20081010
  Serious: No
  Sender: FDA-Public Use
  Company Number: US-ASTRAZENECA-2007UW20898

PATIENT
  Sex: Female

DRUGS (5)
  1. PULMICORT RESPULES [Suspect]
     Indication: ASTHMA
     Dosage: 0.5/2ML
     Route: 055
     Dates: start: 20070709
  2. XOPENEX [Suspect]
  3. ASTELIN [Concomitant]
  4. NASONEX [Concomitant]
  5. COUMADIN [Concomitant]

REACTIONS (1)
  - PAIN IN EXTREMITY [None]
